FAERS Safety Report 7369989-5 (Version None)
Quarter: 2011Q1

REPORT INFORMATION
  Report Type: 
  Country: None (occurrence: None)
  Receive Date: 20110323
  Receipt Date: 20110309
  Transmission Date: 20110831
  Serious: Yes (Hospitalization)
  Sender: FDA-Public Use
  Company Number: PHHY2010JP73049

PATIENT
  Sex: Male

DRUGS (2)
  1. ZADITEN [Suspect]
     Indication: RHINITIS ALLERGIC
     Dosage: 0.65 MG TWICE DAILY
     Route: 048
     Dates: start: 20100703, end: 20100801
  2. ONON [Suspect]
     Dosage: 150 MG
     Route: 048
     Dates: start: 20100703, end: 20100801

REACTIONS (3)
  - DIARRHOEA [None]
  - FEBRILE CONVULSION [None]
  - PYREXIA [None]
